FAERS Safety Report 6963920-X (Version None)
Quarter: 2010Q3

REPORT INFORMATION
  Report Type: 
  Country: None (occurrence: None)
  Receive Date: 20100831
  Receipt Date: 20100818
  Transmission Date: 20110219
  Serious: Yes (Hospitalization, Other)
  Sender: FDA-Public Use
  Company Number: AUR-APL-2010-02083

PATIENT
  Sex: Female

DRUGS (4)
  1. AMLODIPINE [Suspect]
     Indication: HYPERTENSION
     Dosage: 20MG, DAILY, ORAL
     Route: 048
  2. AMOXICILLIN AND CLAVULANATE POTASSIUM [Suspect]
     Indication: CYSTITIS
  3. ACENOCOUMAROL [Suspect]
     Dosage: ORAL
     Route: 048
  4. SOTALOL [Suspect]
     Indication: ARRHYTHMIA
     Dosage: 80MG, BID,

REACTIONS (5)
  - ACCIDENTAL OVERDOSE [None]
  - BRADYCARDIA [None]
  - GASTROINTESTINAL HAEMORRHAGE [None]
  - INTERNATIONAL NORMALISED RATIO FLUCTUATION [None]
  - SHOCK [None]
